FAERS Safety Report 23404204 (Version 1)
Quarter: 2024Q1

REPORT INFORMATION
  Report Type: Spontaneous
  Country: CA (occurrence: CA)
  Receive Date: 20240116
  Receipt Date: 20240116
  Transmission Date: 20240409
  Serious: Yes (Other)
  Sender: FDA-Public Use
  Company Number: CA-BAXTER-2024BAX010632

PATIENT
  Age: 79 Year
  Sex: Female

DRUGS (1)
  1. BUPIVACAINE [Suspect]
     Active Substance: BUPIVACAINE
     Indication: Umbilical hernia
     Dosage: DOSAGE FORM: SOLUTION BLOCK/INFILTRATION, 9 MILLIGRAM, ONCE
     Route: 037

REACTIONS (3)
  - Block vertebra [Recovered/Resolved]
  - Sensory disturbance [Recovered/Resolved]
  - Motor dysfunction [Recovered/Resolved]
